FAERS Safety Report 6394131-7 (Version None)
Quarter: 2009Q4

REPORT INFORMATION
  Report Type: 
  Country: None (occurrence: None)
  Receive Date: 20091008
  Receipt Date: 20090930
  Transmission Date: 20100525
  Serious: Yes (Hospitalization)
  Sender: FDA-Public Use
  Company Number: US-AMGEN-US282685

PATIENT
  Sex: Male

DRUGS (5)
  1. PANITUMUMAB [Suspect]
     Indication: COLORECTAL CANCER
     Route: 042
     Dates: start: 20080428, end: 20080513
  2. IRINOTECAN HCL [Concomitant]
     Dates: start: 20080428, end: 20080513
  3. FLUOROURACIL [Concomitant]
     Route: 040
     Dates: start: 20080428, end: 20080513
  4. FLUOROURACIL [Concomitant]
     Route: 042
     Dates: start: 20080428, end: 20080513
  5. LEUCOVORIN CALCIUM [Concomitant]
     Route: 065
     Dates: start: 20080428

REACTIONS (1)
  - ASTHENIA [None]
